FAERS Safety Report 10154904 (Version 1)
Quarter: 2014Q2

REPORT INFORMATION
  Report Type: Spontaneous
  Country: FR (occurrence: FR)
  Receive Date: 20140506
  Receipt Date: 20140506
  Transmission Date: 20141212
  Serious: Yes (Other)
  Sender: FDA-Public Use
  Company Number: FR-ABBVIE-14P-056-1231183-00

PATIENT
  Age: 24 Year
  Sex: Female

DRUGS (1)
  1. KALETRA [Suspect]
     Indication: PROPHYLAXIS AGAINST HIV INFECTION
     Dates: start: 20140412, end: 20140412

REACTIONS (3)
  - Face oedema [Recovered/Resolved]
  - Laryngeal discomfort [Recovered/Resolved]
  - Malaise [Recovered/Resolved]
